FAERS Safety Report 9276250 (Version 2)
Quarter: 2013Q2

REPORT INFORMATION
  Report Type: Report from Study
  Country: AU (occurrence: AU)
  Receive Date: 20130507
  Receipt Date: 20130515
  Transmission Date: 20140414
  Serious: Yes (Other)
  Sender: FDA-Public Use
  Company Number: PHHY2013AU043575

PATIENT
  Age: 67 Year
  Sex: Female
  Weight: 76 kg

DRUGS (3)
  1. ACLASTA [Suspect]
     Dosage: 5 MG, UNK
     Route: 042
     Dates: start: 20100116
  2. ACLASTA [Suspect]
     Dosage: 5 MG, UNK
     Route: 042
     Dates: start: 20120328
  3. IRON [Concomitant]
     Dosage: UNK
     Dates: start: 20101125

REACTIONS (5)
  - Pancreatic neoplasm [Unknown]
  - Abdominal pain [Unknown]
  - Weight decreased [Unknown]
  - Vitamin D decreased [Recovered/Resolved]
  - Heart rate increased [Unknown]
